FAERS Safety Report 18684444 (Version 5)
Quarter: 2022Q1

REPORT INFORMATION
  Report Type: Report from Study
  Country: US (occurrence: US)
  Receive Date: 20201230
  Receipt Date: 20220111
  Transmission Date: 20220423
  Serious: No
  Sender: FDA-Public Use
  Company Number: NVSC2020US339884

PATIENT
  Sex: Female

DRUGS (2)
  1. MAYZENT [Suspect]
     Active Substance: SIPONIMOD
     Indication: Multiple sclerosis
     Dosage: 2 MG, QD
     Route: 048
  2. MAYZENT [Suspect]
     Active Substance: SIPONIMOD
     Dosage: 2 MG/KG, QD (EVERY OTHER DAY)
     Route: 048
     Dates: start: 20210418

REACTIONS (3)
  - Inappropriate schedule of product administration [Unknown]
  - Immune system disorder [Unknown]
  - Lymphopenia [Not Recovered/Not Resolved]
